FAERS Safety Report 16711314 (Version 1)
Quarter: 2019Q3

REPORT INFORMATION
  Report Type: Spontaneous
  Country: ES (occurrence: ES)
  Receive Date: 20190816
  Receipt Date: 20190816
  Transmission Date: 20191004
  Serious: Yes (Hospitalization, Other)
  Sender: FDA-Public Use
  Company Number: ES-JNJFOC-20190817243

PATIENT
  Age: 77 Year
  Sex: Female

DRUGS (10)
  1. EUCREAS [Concomitant]
     Active Substance: METFORMIN HYDROCHLORIDE\VILDAGLIPTIN
     Dosage: 50 MG/1000 MG
     Route: 048
     Dates: start: 20131224
  2. PARACETAMOL CINFA [Concomitant]
     Dates: start: 20170928
  3. TARKA [Concomitant]
     Active Substance: TRANDOLAPRIL\VERAPAMIL HYDROCHLORIDE
     Dosage: 180 MG/ 2MG
     Route: 048
     Dates: start: 20120227
  4. GLIMEPIRIDA CINFA [Concomitant]
     Route: 048
     Dates: start: 20150311
  5. OMEPRAZOL CINFAMED [Concomitant]
     Route: 048
     Dates: start: 20120211
  6. SERTRALINA CINFA [Concomitant]
     Route: 048
     Dates: start: 20130524
  7. METAMIZOL CINFA [Concomitant]
     Active Substance: METAMIZOLE
     Route: 048
     Dates: start: 20190320
  8. ATORVASTATINA RATIO [Concomitant]
     Route: 048
     Dates: start: 20171027
  9. HIGROTONA [Concomitant]
     Active Substance: CHLORTHALIDONE
     Route: 048
     Dates: start: 20190326
  10. INVOKANA [Suspect]
     Active Substance: CANAGLIFLOZIN
     Indication: TYPE 2 DIABETES MELLITUS
     Route: 048
     Dates: start: 20160304, end: 20190707

REACTIONS (1)
  - Fournier^s gangrene [Recovered/Resolved]

NARRATIVE: CASE EVENT DATE: 20190707
